FAERS Safety Report 8309207-4 (Version None)
Quarter: 2012Q2

REPORT INFORMATION
  Report Type: 
  Country: None (occurrence: None)
  Receive Date: 20120424
  Receipt Date: 20120409
  Transmission Date: 20120825
  Serious: Yes (Other)
  Sender: FDA-Public Use
  Company Number: CHPA2012US009020

PATIENT
  Sex: Male

DRUGS (1)
  1. EXCEDRIN EXTRA STRENGTH TABLETS [Suspect]
     Indication: HEADACHE
     Dosage: 2 DF, TID, 4-5 TIMES A WEEK
     Route: 048
     Dates: start: 19920101, end: 20120407

REACTIONS (5)
  - BLOOD PRESSURE ABNORMAL [None]
  - CARDIAC DISORDER [None]
  - RESPIRATORY DISORDER [None]
  - DIZZINESS [None]
  - EXERCISE TOLERANCE DECREASED [None]
